FAERS Safety Report 6524979-7 (Version None)
Quarter: 2010Q1

REPORT INFORMATION
  Report Type: 
  Country: None (occurrence: None)
  Receive Date: 20100104
  Receipt Date: 20091223
  Transmission Date: 20100710
  Serious: Yes (Other)
  Sender: FDA-Public Use
  Company Number: US-ALEXION-A200900888

PATIENT
  Sex: Female

DRUGS (8)
  1. SOLIRIS [Suspect]
     Indication: PAROXYSMAL NOCTURNAL HAEMOGLOBINURIA
     Dosage: 600 MG, WEEKLY FOR 4 WEEKS
     Route: 042
     Dates: start: 20080311, end: 20080401
  2. SOLIRIS [Suspect]
     Dosage: 900 MG, EVERY 2 WEEKS
     Route: 042
     Dates: start: 20080408, end: 20091027
  3. FOLIC ACID [Concomitant]
     Dosage: 10 MG, QD
     Route: 048
  4. ZANTAC                             /00550802/ [Concomitant]
     Dosage: 150, PRN
  5. MICARDIS [Concomitant]
     Dosage: 80/12.5, QD
  6. METOPROLOL TARTRATE [Concomitant]
     Dosage: 50 MG, QD
     Route: 048
  7. METFORMIN [Concomitant]
     Dosage: UNK
  8. ARANESP [Concomitant]
     Dosage: QW

REACTIONS (3)
  - DRUG INEFFECTIVE [None]
  - MOUTH ULCERATION [None]
  - PLATELET COUNT DECREASED [None]
